FAERS Safety Report 7134259-7 (Version None)
Quarter: 2010Q4

REPORT INFORMATION
  Report Type: 
  Country: None (occurrence: None)
  Receive Date: 20101117
  Receipt Date: 20101104
  Transmission Date: 20110411
  Serious: Yes (Hospitalization)
  Sender: FDA-Public Use
  Company Number: 2010S1000767

PATIENT
  Age: 63 Year
  Sex: Male
  Weight: 67 kg

DRUGS (2)
  1. LIVALO [Suspect]
     Indication: HYPERCHOLESTEROLAEMIA
     Dosage: 1 MG; 1X; PO
     Route: 048
     Dates: start: 20041105, end: 20090825
  2. NOVOMIX [Concomitant]

REACTIONS (2)
  - GASTRIC CANCER [None]
  - LARGE INTESTINE CARCINOMA [None]
